FAERS Safety Report 8972338 (Version 2)
Quarter: 2013Q1

REPORT INFORMATION
  Report Type: Spontaneous
  Country: FR (occurrence: FR)
  Receive Date: 20121218
  Receipt Date: 20130117
  Transmission Date: 20140127
  Serious: Yes (Hospitalization, Other)
  Sender: FDA-Public Use
  Company Number: FR-ROCHE-1170832

PATIENT
  Sex: Male

DRUGS (8)
  1. LUCENTIS [Suspect]
     Indication: AGE-RELATED MACULAR DEGENERATION
     Route: 050
  2. ELIGARD [Concomitant]
  3. CASODEX [Concomitant]
     Route: 065
  4. CRESTOR [Concomitant]
     Route: 065
  5. ZYMAD [Concomitant]
     Route: 048
  6. KARDEGIC [Concomitant]
     Route: 048
  7. DOLIPRANE [Concomitant]
     Indication: PAIN
     Route: 048
  8. DOLIPRANE [Concomitant]
     Indication: PYREXIA

REACTIONS (3)
  - Epilepsy [Recovered/Resolved]
  - Cerebral atrophy [Unknown]
  - Bundle branch block right [Unknown]
